FAERS Safety Report 4294244-X (Version None)
Quarter: 2004Q1

REPORT INFORMATION
  Report Type: 
  Country: None (occurrence: None)
  Receive Date: 20040212
  Receipt Date: 20040212
  Transmission Date: 20041129
  Serious: Yes (Hospitalization)
  Sender: FDA-Public Use
  Company Number: None

PATIENT
  Age: 73 Year
  Sex: Female
  Weight: 52.1637 kg

DRUGS (24)
  1. LINEZOLID 600 MG PHARMACIA [Suspect]
     Indication: ENTEROCOCCAL BACTERAEMIA
     Dosage: 600 MG IV Q 12 HOURS
     Route: 042
     Dates: start: 20040116, end: 20040127
  2. LINEZOLID 600 MG PHARMACIA [Suspect]
     Indication: GLYCOPEPTIDE ANTIBIOTIC RESISTANT ENTEROCOCCAL INFECTION
     Dosage: 600 MG IV Q 12 HOURS
     Route: 042
     Dates: start: 20040116, end: 20040127
  3. VANCOMYCIN [Concomitant]
  4. NOREPINEPHRINE DRIP [Concomitant]
  5. DOPAMINE DRIP [Concomitant]
  6. PARICALCITRIOL [Concomitant]
  7. EPOGEN [Concomitant]
  8. GATIFLOXACIN [Concomitant]
  9. PROPOXYPHEN [Concomitant]
  10. MORPHINE [Concomitant]
  11. DIPHENHYDRAMINE HCL [Concomitant]
  12. ACETAMINOPHEN [Concomitant]
  13. TRAZODONE HCL [Concomitant]
  14. SIMVASTATIN [Concomitant]
  15. SEVELAMER [Concomitant]
  16. MIDAZOLAM DRIP [Concomitant]
  17. REGULAR HUMAN INSULIN [Concomitant]
  18. PANTOPRAZOLE [Concomitant]
  19. NEPHROCAPS [Concomitant]
  20. HEPARIN [Concomitant]
  21. DONEPEZIL [Concomitant]
  22. DIGOXIN [Concomitant]
  23. ASPIRIN [Concomitant]
  24. SYNERCID [Concomitant]

REACTIONS (2)
  - LEG AMPUTATION [None]
  - THROMBOCYTOPENIA [None]
